FAERS Safety Report 9244617 (Version 3)
Quarter: 2013Q4

REPORT INFORMATION
  Report Type: Spontaneous
  Country: BR (occurrence: BR)
  Receive Date: 20130422
  Receipt Date: 20131021
  Transmission Date: 20140711
  Serious: Yes (Other)
  Sender: FDA-Public Use
  Company Number: PHHY2013BR038494

PATIENT
  Age: 88 Year
  Sex: Male

DRUGS (2)
  1. APRESOLIN [Suspect]
     Indication: HYPERTENSION
     Dosage: 2 DF, (50 MG) A DAY
     Route: 048
  2. DIOVAN HCT [Suspect]
     Indication: HYPERTENSION
     Dosage: 1 DF, (320/5 MG) A DAY
     Route: 048

REACTIONS (3)
  - Hypertension [Unknown]
  - Head discomfort [Unknown]
  - Blood pressure abnormal [Not Recovered/Not Resolved]
